FAERS Safety Report 24972525 (Version 2)
Quarter: 2025Q1

REPORT INFORMATION
  Report Type: Spontaneous
  Country: BE (occurrence: BE)
  Receive Date: 20250215
  Receipt Date: 20250226
  Transmission Date: 20250409
  Serious: Yes (Hospitalization)
  Sender: BAUSCH AND LOMB
  Company Number: BE-MLMSERVICE-20250204-PI387849-00330-1

PATIENT
  Age: 27 Year
  Sex: Male

DRUGS (3)
  1. VENLAFAXINE [Suspect]
     Active Substance: VENLAFAXINE HYDROCHLORIDE
     Indication: Depression
     Dosage: IN THE MORNING AND THEN TAPERED DOWN BEFORE STOPPED
     Route: 065
  2. ATOMOXETINE [Concomitant]
     Active Substance: ATOMOXETINE
     Indication: Attention deficit hyperactivity disorder
     Dosage: IN THE MORNING AND THEN TAPERED DOWN BEFORE STOPPED
  3. BILASTINE [Concomitant]
     Active Substance: BILASTINE
     Indication: Antiallergic therapy
     Dosage: IN THE MORNING AND UNCHANGED FOR MORE THAN 3 MONTHS

REACTIONS (1)
  - Reversible cerebral vasoconstriction syndrome [Recovered/Resolved]
